FAERS Safety Report 16176635 (Version 2)
Quarter: 2019Q2

REPORT INFORMATION
  Report Type: Report from Study
  Country: DE (occurrence: DE)
  Receive Date: 20190409
  Receipt Date: 20190502
  Transmission Date: 20190711
  Serious: Yes (Other)
  Sender: FDA-Public Use
  Company Number: PHHY2015DE071139

PATIENT
  Age: 36 Year
  Sex: Male

DRUGS (2)
  1. GILENYA [Suspect]
     Active Substance: FINGOLIMOD HYDROCHLORIDE
     Indication: MULTIPLE SCLEROSIS
     Dosage: QD
     Route: 048
     Dates: start: 20150203
  2. GILENYA [Suspect]
     Active Substance: FINGOLIMOD HYDROCHLORIDE
     Dosage: QD
     Route: 048
     Dates: start: 20150211

REACTIONS (10)
  - Abscess neck [Unknown]
  - Alanine aminotransferase increased [Recovered/Resolved]
  - Angina pectoris [Recovered/Resolved]
  - Influenza like illness [Unknown]
  - Nasopharyngitis [Recovered/Resolved]
  - White blood cell count decreased [Unknown]
  - Low density lipoprotein increased [Unknown]
  - Headache [Unknown]
  - Chest discomfort [Unknown]
  - High density lipoprotein increased [Unknown]

NARRATIVE: CASE EVENT DATE: 20150210
